FAERS Safety Report 18299329 (Version 2)
Quarter: 2020Q3

REPORT INFORMATION
  Report Type: Spontaneous
  Country: US (occurrence: US)
  Receive Date: 20200922
  Receipt Date: 20200924
  Transmission Date: 20201103
  Serious: No
  Sender: FDA-Public Use
  Company Number: US-BRISTOL-MYERS SQUIBB COMPANY-BMS-2020-077613

PATIENT
  Sex: Female

DRUGS (3)
  1. SPRYCEL [Suspect]
     Active Substance: DASATINIB
     Indication: CHRONIC MYELOID LEUKAEMIA
     Dosage: 50 MILLIGRAM, QD
     Route: 048
     Dates: start: 201707
  2. SPRYCEL [Suspect]
     Active Substance: DASATINIB
     Indication: ANAEMIA
     Dosage: 50 MILLIGRAM, QD
     Route: 048
     Dates: start: 20151029
  3. SPRYCEL [Suspect]
     Active Substance: DASATINIB
     Indication: HAEMOCHROMATOSIS

REACTIONS (1)
  - Somnolence [Unknown]
